FAERS Safety Report 6249680-9 (Version None)
Quarter: 2009Q2

REPORT INFORMATION
  Report Type: 
  Country: None (occurrence: None)
  Receive Date: 20090624
  Receipt Date: 20090609
  Transmission Date: 20091009
  Serious: Yes (Disabling, Other)
  Sender: FDA-Public Use
  Company Number: A-CH2006-12481

PATIENT
  Age: 33 Year
  Sex: Female
  Weight: 51 kg

DRUGS (4)
  1. TRACLEER [Suspect]
     Indication: SCLERODERMA
     Dosage: 125 MG, BID, ORAL ; ORAL
     Route: 048
  2. LEVONORGESTREL [Suspect]
  3. OMEPRAZOLE [Suspect]
  4. ASPEGIC BABY(AMINOACETIC ACID, ACETYLSALICYLATE LYSINE) [Suspect]
     Dates: start: 20060613, end: 20061015

REACTIONS (7)
  - CAESAREAN SECTION [None]
  - DRUG EXPOSURE BEFORE PREGNANCY [None]
  - DRUG INTERACTION [None]
  - PREGNANCY ON CONTRACEPTIVE [None]
  - PREMATURE BABY [None]
  - THERAPEUTIC RESPONSE DECREASED [None]
  - UNINTENDED PREGNANCY [None]
